FAERS Safety Report 14102087 (Version 1)
Quarter: 2017Q4

REPORT INFORMATION
  Report Type: Report from Study
  Country: US (occurrence: US)
  Receive Date: 20171018
  Receipt Date: 20171018
  Transmission Date: 20180321
  Serious: Yes (Other)
  Sender: FDA-Public Use
  Company Number: US-ACADIA PHARMACEUTICALS INC.-ACA-2017-005819

PATIENT
  Sex: Male
  Weight: 88.44 kg

DRUGS (3)
  1. NUPLAZID [Suspect]
     Active Substance: PIMAVANSERIN TARTRATE
     Indication: HALLUCINATION
  2. NUPLAZID [Suspect]
     Active Substance: PIMAVANSERIN TARTRATE
     Indication: DELUSION
  3. NUPLAZID [Suspect]
     Active Substance: PIMAVANSERIN TARTRATE
     Indication: PARKINSON^S DISEASE PSYCHOSIS
     Dosage: 2 TABLET, QD
     Route: 065
     Dates: start: 20170804

REACTIONS (8)
  - Tremor [Unknown]
  - Defiant behaviour [Unknown]
  - Feeling abnormal [Unknown]
  - Hallucination [Not Recovered/Not Resolved]
  - Feeling cold [Unknown]
  - Panic reaction [Unknown]
  - Diverticulitis [Unknown]
  - Chills [Unknown]

NARRATIVE: CASE EVENT DATE: 2017
